FAERS Safety Report 26010206 (Version 1)
Quarter: 2025Q4

REPORT INFORMATION
  Report Type: Spontaneous
  Country: CN (occurrence: CN)
  Receive Date: 20251107
  Receipt Date: 20251107
  Transmission Date: 20260118
  Serious: Yes (Hospitalization)
  Sender: ASTELLAS
  Company Number: CN-ASTELLAS-2025-AER-061064

PATIENT
  Age: 70 Year
  Sex: Male

DRUGS (1)
  1. PADCEV [Suspect]
     Active Substance: ENFORTUMAB VEDOTIN-EJFV
     Indication: Neoplasm malignant
     Dosage: DAY 1 AND DAY 8
     Route: 042
     Dates: start: 20251022, end: 20251029

REACTIONS (2)
  - Arteriosclerosis coronary artery [Unknown]
  - Acute coronary syndrome [Unknown]

NARRATIVE: CASE EVENT DATE: 20251029
